FAERS Safety Report 4827650-2 (Version None)
Quarter: 2005Q4

REPORT INFORMATION
  Report Type: 
  Country: None (occurrence: None)
  Receive Date: 20051114
  Receipt Date: 20050808
  Transmission Date: 20060501
  Serious: Yes (Hospitalization, Disabling)
  Sender: FDA-Public Use
  Company Number: US-MERCK-0508USA01547

PATIENT
  Age: 54 Year
  Sex: Male
  Weight: 104 kg

DRUGS (8)
  1. VIOXX [Suspect]
     Indication: ARTHRALGIA
     Route: 048
     Dates: start: 20020109, end: 20030724
  2. [THERAPY UNSPECIFIED] [Concomitant]
     Route: 065
  3. ALLEGRA [Concomitant]
     Route: 065
  4. DICYCLOMINE HYDROCHLORIDE [Concomitant]
     Route: 065
  5. ZITHROMAX [Concomitant]
     Route: 065
  6. FUROSEMIDE [Concomitant]
     Route: 065
  7. PRILOSEC [Concomitant]
     Route: 065
  8. PENICILLIN V POTASSIUM [Concomitant]
     Route: 065

REACTIONS (4)
  - CONDITION AGGRAVATED [None]
  - DEPRESSION [None]
  - IMPAIRED WORK ABILITY [None]
  - MYOCARDIAL INFARCTION [None]
